FAERS Safety Report 12607759 (Version 3)
Quarter: 2018Q1

REPORT INFORMATION
  Report Type: Spontaneous
  Country: US (occurrence: US)
  Receive Date: 20160729
  Receipt Date: 20180104
  Transmission Date: 20180508
  Serious: No
  Sender: FDA-Public Use
  Company Number: US-009507513-1607USA012416

PATIENT
  Sex: Male

DRUGS (2)
  1. ZETIA [Suspect]
     Active Substance: EZETIMIBE
     Indication: TYPE IIA HYPERLIPIDAEMIA
     Dosage: UNK
     Route: 048
  2. PRAVASTATIN. [Suspect]
     Active Substance: PRAVASTATIN
     Dosage: UNK

REACTIONS (3)
  - Myopathy [Unknown]
  - Drug intolerance [Unknown]
  - Muscle disorder [Unknown]
